FAERS Safety Report 5625370-8 (Version None)
Quarter: 2008Q1

REPORT INFORMATION
  Report Type: 
  Country: None (occurrence: None)
  Receive Date: 20080211
  Receipt Date: 20080204
  Transmission Date: 20080703
  Serious: Yes (Death)
  Sender: FDA-Public Use
  Company Number: 2008-00772

PATIENT
  Age: 30 Year
  Sex: Male

DRUGS (4)
  1. ALPRAZOLAM [Suspect]
  2. DEXTROAMPHETAMINE SAC/SLF, AMPHETAMINE ASP/XLF 5(MIXED SALTS(WATSON)(A [Suspect]
  3. HYDROCODONE BITARTRATE/ACETAMINOPHEN  UNKNOWN STRENGTH (WATSON)(HYDROC [Suspect]
  4. ETHANOL(ETHANOL) [Suspect]

REACTIONS (1)
  - CARDIO-RESPIRATORY ARREST [None]
